FAERS Safety Report 21874707 (Version 1)
Quarter: 2023Q1

REPORT INFORMATION
  Report Type: Spontaneous
  Country: US (occurrence: None)
  Receive Date: 20230117
  Receipt Date: 20230117
  Transmission Date: 20230417
  Serious: No
  Sender: FDA-Public Use
  Company Number: 2022A415944

PATIENT
  Age: 74 Year
  Sex: Male

DRUGS (15)
  1. BUDESONIDE\FORMOTEROL\GLYCOPYRRONIUM [Suspect]
     Active Substance: BUDESONIDE\FORMOTEROL\GLYCOPYRRONIUM
     Indication: Chronic obstructive pulmonary disease
     Route: 055
     Dates: start: 20221207
  2. ISOSORBIDE [Concomitant]
     Active Substance: ISOSORBIDE
  3. FUROSOMIDE [Concomitant]
  4. BUDESONIDE [Concomitant]
     Active Substance: BUDESONIDE
     Route: 055
     Dates: end: 20220712
  5. BUDESONIDE [Concomitant]
     Active Substance: BUDESONIDE
     Route: 055
  6. ALBUTEROL [Concomitant]
     Active Substance: ALBUTEROL
     Dates: end: 20220712
  7. ALBUTEROL [Concomitant]
     Active Substance: ALBUTEROL
  8. IPRATROPIUM [Concomitant]
     Active Substance: IPRATROPIUM
     Dates: end: 20220712
  9. IPRATROPIUM [Concomitant]
     Active Substance: IPRATROPIUM
  10. ELIQUIS [Concomitant]
     Active Substance: APIXABAN
  11. FLUTICASONE [Concomitant]
     Active Substance: FLUTICASONE
  12. PLAVIX [Concomitant]
     Active Substance: CLOPIDOGREL BISULFATE
  13. FAMOTIDINE [Concomitant]
     Active Substance: FAMOTIDINE
  14. DEXILANT [Concomitant]
     Active Substance: DEXLANSOPRAZOLE
  15. AZESTINE [Concomitant]

REACTIONS (3)
  - Feeling abnormal [Recovered/Resolved]
  - Palpitations [Recovered/Resolved]
  - Device use issue [Unknown]
